FAERS Safety Report 16676130 (Version 1)
Quarter: 2019Q3

REPORT INFORMATION
  Report Type: Spontaneous
  Country: DE (occurrence: DE)
  Receive Date: 20190807
  Receipt Date: 20190807
  Transmission Date: 20191004
  Serious: Yes (Hospitalization)
  Sender: FDA-Public Use
  Company Number: DE-DRREDDYS-GER/GER/19/0112793

PATIENT
  Age: 48 Year
  Sex: Male

DRUGS (2)
  1. CIPROFLOXACIN. [Suspect]
     Active Substance: CIPROFLOXACIN
     Indication: PRODUCT USED FOR UNKNOWN INDICATION
     Dosage: 500 MG, ABGESETZT AM 22.11.2017?500 MG, SOLD ON 22.11.2017
  2. CORTISON [Concomitant]
     Active Substance: CORTISONE ACETATE
     Indication: PRODUCT USED FOR UNKNOWN INDICATION
     Dosage: NK MG, EINMALIG AM 20.11.2017?NK MG, ONCE ON 20.11.2017
     Route: 030

REACTIONS (2)
  - Pain in extremity [Unknown]
  - Immobile [Unknown]

NARRATIVE: CASE EVENT DATE: 20171122
